FAERS Safety Report 16054548 (Version 1)
Quarter: 2019Q1

REPORT INFORMATION
  Report Type: Spontaneous
  Country: US (occurrence: US)
  Receive Date: 20190309
  Receipt Date: 20190309
  Transmission Date: 20190418
  Serious: Yes (Other)
  Sender: FDA-Public Use
  Company Number: US-TAKEDA-2019TUS012192

PATIENT
  Age: 48 Year
  Sex: Male
  Weight: 83.9 kg

DRUGS (2)
  1. ULORIC [Suspect]
     Active Substance: FEBUXOSTAT
     Dosage: 40 MILLIGRAM, QD
     Route: 048
  2. ULORIC [Suspect]
     Active Substance: FEBUXOSTAT
     Indication: NEPHROLITHIASIS
     Dosage: 20 MILLIGRAM, QD
     Route: 048

REACTIONS (3)
  - Meniscus injury [Unknown]
  - Off label use [Unknown]
  - Deep vein thrombosis [Recovered/Resolved]

NARRATIVE: CASE EVENT DATE: 201807
